FAERS Safety Report 21012103 (Version 1)
Quarter: 2022Q3

REPORT INFORMATION
  Report Type: Spontaneous
  Country: SN (occurrence: SN)
  Receive Date: 20220627
  Receipt Date: 20220627
  Transmission Date: 20221027
  Serious: Yes (Other)
  Sender: FDA-Public Use
  Company Number: SN-NOVARTISPH-NVSC2022SN144958

PATIENT
  Age: 80 Year
  Sex: Female

DRUGS (1)
  1. DICLOFENAC SODIUM [Suspect]
     Active Substance: DICLOFENAC SODIUM
     Indication: Polyarthritis
     Dosage: 1 MG, QD
     Route: 048
     Dates: start: 20220310, end: 20220312

REACTIONS (1)
  - Tongue oedema [Unknown]
